FAERS Safety Report 20428233 (Version 2)
Quarter: 2023Q4

REPORT INFORMATION
  Report Type: Report from Study
  Country: US (occurrence: US)
  Receive Date: 20220204
  Receipt Date: 20231129
  Transmission Date: 20240109
  Serious: Yes (Hospitalization)
  Sender: FDA-Public Use
  Company Number: US-Merck Healthcare KGaA-9297154

PATIENT
  Age: 51 Year
  Sex: Female

DRUGS (2)
  1. REBIF [Suspect]
     Active Substance: INTERFERON BETA-1A
     Indication: Multiple sclerosis
     Route: 058
     Dates: start: 20211208
  2. REBIF [Suspect]
     Active Substance: INTERFERON BETA-1A
     Route: 058
     Dates: start: 20150212, end: 20211105

REACTIONS (4)
  - Myocardial infarction [Unknown]
  - Coronary artery occlusion [Unknown]
  - Joint swelling [Unknown]
  - Muscle spasms [Unknown]

NARRATIVE: CASE EVENT DATE: 20180401
